FAERS Safety Report 6269882-5 (Version None)
Quarter: 2009Q3

REPORT INFORMATION
  Report Type: 
  Country: None (occurrence: None)
  Receive Date: 20090716
  Receipt Date: 20090707
  Transmission Date: 20100115
  Serious: Yes (Other)
  Sender: FDA-Public Use
  Company Number: PHHY2009BR27849

PATIENT
  Sex: Male

DRUGS (2)
  1. TRILEPTAL [Suspect]
     Indication: CONVULSION
     Dosage: 300MG
     Route: 048
     Dates: start: 20090601
  2. DEPAKENE [Concomitant]
     Indication: CONVULSION
     Dosage: 500MG
     Route: 048
     Dates: start: 20070101

REACTIONS (7)
  - BURNING SENSATION [None]
  - FEELING HOT [None]
  - GENERALISED ERYTHEMA [None]
  - IMPAIRED WORK ABILITY [None]
  - INSOMNIA [None]
  - PRURITUS GENERALISED [None]
  - THERAPEUTIC AGENT TOXICITY [None]
